FAERS Safety Report 7450465-6 (Version None)
Quarter: 2011Q2

REPORT INFORMATION
  Report Type: 
  Country: None (occurrence: None)
  Receive Date: 20110422
  Receipt Date: 20110407
  Transmission Date: 20111010
  Serious: Yes (Other)
  Sender: FDA-Public Use
  Company Number: 2010004979

PATIENT
  Age: 50 Year
  Sex: Female
  Weight: 49 kg

DRUGS (4)
  1. GASPORT [Concomitant]
  2. TARCEVA [Suspect]
     Indication: NON-SMALL CELL LUNG CANCER
     Dosage: (150 MG, QD), ORAL
     Route: 048
     Dates: start: 20100912
  3. DECADRON (DEXAMETHASTONE) [Concomitant]
  4. PRIMEPAN [Concomitant]

REACTIONS (4)
  - OPTIC NEURITIS [None]
  - CONVULSION [None]
  - ABDOMINAL DISCOMFORT [None]
  - CEREBELLAR ATROPHY [None]
